FAERS Safety Report 13108476 (Version 1)
Quarter: 2017Q1

REPORT INFORMATION
  Report Type: Spontaneous
  Country: US (occurrence: US)
  Receive Date: 20170111
  Receipt Date: 20170111
  Transmission Date: 20170428
  Serious: Yes (Disabling)
  Sender: FDA-Public Use
  Company Number: None

PATIENT
  Age: 47 Year
  Sex: Female
  Weight: 51.75 kg

DRUGS (5)
  1. VITAMIN D [Concomitant]
     Active Substance: CHOLECALCIFEROL
  2. TAMOXIFEN [Suspect]
     Active Substance: TAMOXIFEN
     Indication: BREAST CANCER
     Route: 048
     Dates: start: 20110801, end: 20161018
  3. MULTI VITAMIN [Concomitant]
     Active Substance: VITAMINS
  4. FISH OIL [Concomitant]
     Active Substance: FISH OIL
  5. LIPITOR [Concomitant]
     Active Substance: ATORVASTATIN CALCIUM

REACTIONS (30)
  - Headache [None]
  - Abdominal pain [None]
  - Haematochezia [None]
  - Feeling abnormal [None]
  - Pelvic discomfort [None]
  - Haemorrhage [None]
  - Cough [None]
  - Alopecia [None]
  - Vomiting [None]
  - Migraine [None]
  - Anxiety [None]
  - Contusion [None]
  - Disturbance in attention [None]
  - Abdominal pain upper [None]
  - Fear [None]
  - Depressed mood [None]
  - Swelling [None]
  - Dry skin [None]
  - Discomfort [None]
  - Drug withdrawal syndrome [None]
  - Bone pain [None]
  - Nausea [None]
  - Diarrhoea [None]
  - Irritability [None]
  - Abdominal discomfort [None]
  - Dizziness [None]
  - Arthralgia [None]
  - Vision blurred [None]
  - Pain [None]
  - Insomnia [None]

NARRATIVE: CASE EVENT DATE: 20161018
